FAERS Safety Report 12868982 (Version 8)
Quarter: 2018Q2

REPORT INFORMATION
  Report Type: Spontaneous
  Country: US (occurrence: US)
  Receive Date: 20161021
  Receipt Date: 20180419
  Transmission Date: 20180711
  Serious: No
  Sender: FDA-Public Use
  Company Number: US-PFIZER INC-2016491199

PATIENT
  Age: 57 Year
  Sex: Male
  Weight: 70.31 kg

DRUGS (2)
  1. GENOTROPIN MQ [Suspect]
     Active Substance: SOMATROPIN
     Dosage: 0.2 MG, DAILY
     Dates: start: 20010928
  2. GENOTROPIN MQ [Suspect]
     Active Substance: SOMATROPIN
     Indication: HYPOTHALAMO-PITUITARY DISORDER
     Dosage: 0.2 MG, ONCE AT NIGHT
     Dates: start: 1997

REACTIONS (5)
  - Fatigue [Unknown]
  - Malaise [Unknown]
  - Influenza [Unknown]
  - Nasopharyngitis [Unknown]
  - Drug dose omission [Unknown]
